FAERS Safety Report 12597353 (Version 2)
Quarter: 2018Q2

REPORT INFORMATION
  Report Type: Report from Study
  Country: BE (occurrence: BE)
  Receive Date: 20160727
  Receipt Date: 20180409
  Transmission Date: 20180711
  Serious: Yes (Other)
  Sender: FDA-Public Use
  Company Number: BE-SUN PHARMACEUTICAL INDUSTRIES LTD-2016R1-121012

PATIENT
  Sex: Male

DRUGS (6)
  1. 5-FLUOROURACIL [Suspect]
     Active Substance: FLUOROURACIL
     Indication: TONSIL CANCER
     Dosage: 750 MG/M2 ON DAY 1-5
     Route: 065
  2. DEXAMETHASONE. [Concomitant]
     Active Substance: DEXAMETHASONE
     Indication: PREMEDICATION
     Dosage: 8 MG, BID, FOR 3 DAYS STARTING ON DAY -1
     Route: 048
  3. DOCETAXEL. [Suspect]
     Active Substance: DOCETAXEL
     Indication: TONSIL CANCER
     Dosage: 75 MG/M2 ON DAY 1
     Route: 065
     Dates: start: 200606
  4. CETUXIMAB. [Interacting]
     Active Substance: CETUXIMAB
     Indication: TONSIL CANCER
     Dosage: 250 MG/M2 ON DAYS 1, 8 AND 15 AFTER INITIAL LOADING DOSE OF 400 MG/M2 ON DAY 1 OF 1ST CYCLE;WEEKLY
     Route: 065
  5. CIPROFLOXACIN. [Concomitant]
     Active Substance: CIPROFLOXACIN
     Indication: ANTIBIOTIC PROPHYLAXIS
     Dosage: 500 MG, BID, ON DAYS 5-15
     Route: 065
  6. CISPLATIN. [Suspect]
     Active Substance: CISPLATIN
     Indication: TONSIL CANCER
     Dosage: 75 MG/M2 ON DAY 1
     Route: 065
     Dates: start: 200606

REACTIONS (4)
  - Decreased appetite [Unknown]
  - Toxicity to various agents [Unknown]
  - Neutropenia [Unknown]
  - Drug interaction [Unknown]
